FAERS Safety Report 20138645 (Version 1)
Quarter: 2021Q4

REPORT INFORMATION
  Report Type: Spontaneous
  Country: KR (occurrence: KR)
  Receive Date: 20211202
  Receipt Date: 20211202
  Transmission Date: 20220303
  Serious: Yes (Other)
  Sender: FDA-Public Use
  Company Number: KR-MACLEODS PHARMACEUTICALS US LTD-MAC2020029430

PATIENT

DRUGS (13)
  1. DONEPEZIL [Interacting]
     Active Substance: DONEPEZIL
     Indication: Dementia
     Dosage: 5 MILLIGRAM
     Route: 065
  2. ROCURONIUM [Interacting]
     Active Substance: ROCURONIUM BROMIDE
     Indication: Neuromuscular blockade
     Dosage: 50 MILLIGRAM, (0.9 MG/KG), BOLUS INJECTION, EVERY 1 MINUTE
     Route: 065
  3. ROCURONIUM [Interacting]
     Active Substance: ROCURONIUM BROMIDE
     Dosage: 5 MILLIGRAM, INJECTION
     Route: 065
  4. ROCURONIUM [Interacting]
     Active Substance: ROCURONIUM BROMIDE
     Dosage: 10 MILLIGRAM,(0.18 MG/KG),BOLUS INJECTION
     Route: 065
  5. ROCURONIUM [Interacting]
     Active Substance: ROCURONIUM BROMIDE
     Dosage: 9 MICROGRAM/KILOGRAM, 1 MINUTE (CONTINUOUS INFUSION AT A RATE OF 9 ?G/KG/MIN), INFUSION
     Route: 065
  6. QUETIAPINE [Concomitant]
     Active Substance: QUETIAPINE
     Indication: Product used for unknown indication
     Dosage: 25 MILLIGRAM
     Route: 065
  7. PROPOFOL [Concomitant]
     Active Substance: PROPOFOL
     Indication: Induction and maintenance of anaesthesia
     Dosage: UNK, TARGET-CONTROLLED INFUSION
     Route: 065
  8. PREGABALIN [Concomitant]
     Active Substance: PREGABALIN
     Indication: Product used for unknown indication
     Dosage: 75 MILLIGRAM, BID (FOR 16 MO)
     Route: 065
  9. REMIFENTANIL [Concomitant]
     Active Substance: REMIFENTANIL
     Indication: Induction and maintenance of anaesthesia
     Dosage: UNK, TARGET-CONTROLLED INFUSION
     Route: 065
  10. DESFLURANE [Concomitant]
     Active Substance: DESFLURANE
     Indication: Anaesthesia
     Dosage: UNK (AT AN END-TIDAL CONCENTRATION OF 4-6 VOL %)
  11. CISATRACURIUM [Concomitant]
     Active Substance: CISATRACURIUM
     Indication: Neuromuscular blockade
     Dosage: 6 MILLIGRAM, (0.1 MG/KG)
     Route: 040
     Dates: start: 202004
  12. NEOSTIGMINE [Concomitant]
     Active Substance: NEOSTIGMINE
     Indication: Neuromuscular blockade
     Dosage: 2.5 MILLIGRAM
     Route: 065
  13. GLYCOPYRROLATE [Concomitant]
     Active Substance: GLYCOPYRROLATE
     Indication: Neuromuscular blockade
     Dosage: 0.4 MILLIGRAM
     Route: 065

REACTIONS (3)
  - Therapeutic response shortened [Recovered/Resolved]
  - Drug interaction [Recovered/Resolved]
  - Drug resistance [Recovered/Resolved]
